FAERS Safety Report 6153547-4 (Version None)
Quarter: 2009Q2

REPORT INFORMATION
  Report Type: 
  Country: None (occurrence: None)
  Receive Date: 20090409
  Receipt Date: 20090409
  Transmission Date: 20091009
  Serious: Yes (Other)
  Sender: FDA-Public Use
  Company Number: None

PATIENT
  Age: 38 Year
  Sex: Female
  Weight: 52.1637 kg

DRUGS (1)
  1. MIDRIN UNKNOWN AMERICAN HEALTH [Suspect]
     Indication: MIGRAINE
     Dosage: 2 @ ONSET UPTO 5 TOTAL UPTO 5 IN 24 HOURS PO
     Route: 048
     Dates: start: 20090406, end: 20090407

REACTIONS (3)
  - HEART RATE INCREASED [None]
  - HYPOTENSION [None]
  - URINE AMPHETAMINE POSITIVE [None]
